FAERS Safety Report 9517195 (Version 2)
Quarter: 2015Q4

REPORT INFORMATION
  Report Type: Report from Study
  Country: US (occurrence: US)
  Receive Date: 20130911
  Receipt Date: 20151029
  Transmission Date: 20160305
  Serious: Yes (Other)
  Sender: FDA-Public Use
  Company Number: US-ROCHE-1271615

PATIENT
  Sex: Male

DRUGS (6)
  1. LUCENTIS [Suspect]
     Active Substance: RANIBIZUMAB
     Indication: DIABETIC EYE DISEASE
     Route: 050
  2. POVIDONE [Concomitant]
     Active Substance: POVIDONE
     Route: 065
  3. TETRACAINE. [Concomitant]
     Active Substance: TETRACAINE
     Route: 065
  4. LIDOCAINE. [Concomitant]
     Active Substance: LIDOCAINE
     Route: 065
  5. AVASTIN [Suspect]
     Active Substance: BEVACIZUMAB
     Indication: DIABETIC EYE DISEASE
     Dosage: OS NO DOSE INFORMATION GIVEN
     Route: 065
  6. MOXIFLOXACIN. [Concomitant]
     Active Substance: MOXIFLOXACIN

REACTIONS (3)
  - Vision blurred [Unknown]
  - Diabetic retinal oedema [Unknown]
  - Visual impairment [Unknown]
